FAERS Safety Report 5151066-5 (Version None)
Quarter: 2006Q4

REPORT INFORMATION
  Report Type: 
  Country: None (occurrence: None)
  Receive Date: 20061115
  Receipt Date: 20061104
  Transmission Date: 20070319
  Serious: Yes (Other)
  Sender: FDA-Public Use
  Company Number: PHEH2006US13830

PATIENT
  Age: 66 Year
  Sex: Male

DRUGS (1)
  1. ZELNORM [Suspect]
     Dosage: UNK, BID
     Route: 048

REACTIONS (5)
  - GASTROINTESTINAL DISORDER [None]
  - LUNG CARCINOMA CELL TYPE UNSPECIFIED RECURRENT [None]
  - LUNG OPERATION [None]
  - METASTASES TO KIDNEY [None]
  - METASTASES TO LYMPH NODES [None]
